FAERS Safety Report 9687214 (Version 3)
Quarter: 2013Q4

REPORT INFORMATION
  Report Type: Spontaneous
  Country: US (occurrence: US)
  Receive Date: 20131113
  Receipt Date: 20131230
  Transmission Date: 20140711
  Serious: Yes (Hospitalization, Other)
  Sender: FDA-Public Use
  Company Number: US-AMGEN-USASP2013079602

PATIENT
  Age: 63 Year
  Sex: Female
  Weight: 70 kg

DRUGS (7)
  1. ENBREL [Suspect]
     Indication: RHEUMATOID ARTHRITIS
     Dosage: 50 MG, QWK
     Route: 065
     Dates: start: 20080101
  2. PRILOSEC                           /00661201/ [Concomitant]
     Dosage: 20 MG, QD
  3. SYNTHROID [Concomitant]
     Dosage: 88 MUG, QD
  4. PLAQUENIL                          /00072602/ [Concomitant]
     Dosage: 200 MG, BID
  5. ACTIVELLA [Concomitant]
     Dosage: 1.5 MG, QD
  6. LORATADINE [Concomitant]
     Dosage: 10 MG, AS NEEDED
  7. CALCIUM +D                         /00944201/ [Concomitant]
     Dosage: 500 MG, QD

REACTIONS (20)
  - Ischaemic stroke [Recovered/Resolved]
  - Disorientation [Recovered/Resolved]
  - Mitral valve prolapse [Unknown]
  - Tricuspid valve incompetence [Unknown]
  - Emotional distress [Unknown]
  - VIIth nerve paralysis [Unknown]
  - Hemiparesis [Unknown]
  - Atelectasis [Unknown]
  - Dysarthria [Unknown]
  - Laboratory test abnormal [Unknown]
  - Blood pressure increased [Unknown]
  - Aortic valve sclerosis [Unknown]
  - Cerebral infarction [Unknown]
  - Mitral valve incompetence [Unknown]
  - Pain in extremity [Not Recovered/Not Resolved]
  - Musculoskeletal pain [Not Recovered/Not Resolved]
  - Local swelling [Not Recovered/Not Resolved]
  - Mobility decreased [Unknown]
  - Pulmonary hypertension [Unknown]
  - Balance disorder [Unknown]
